FAERS Safety Report 7215000-6 (Version None)
Quarter: 2011Q1

REPORT INFORMATION
  Report Type: 
  Country: None (occurrence: None)
  Receive Date: 20110107
  Receipt Date: 20100701
  Transmission Date: 20110831
  Serious: No
  Sender: FDA-Public Use
  Company Number: A0868179A

PATIENT
  Age: 60 Year
  Sex: Female

DRUGS (2)
  1. LOVAZA [Suspect]
     Indication: BLOOD CHOLESTEROL INCREASED
     Dosage: 4G FOUR TIMES PER DAY
     Route: 048
  2. TENORMIN [Concomitant]
     Indication: MITRAL VALVE PROLAPSE

REACTIONS (1)
  - CARDIAC FLUTTER [None]
